FAERS Safety Report 10101066 (Version 1)
Quarter: 2014Q2

REPORT INFORMATION
  Report Type: Spontaneous
  Country: US (occurrence: US)
  Receive Date: 20140424
  Receipt Date: 20140424
  Transmission Date: 20141212
  Serious: No
  Sender: FDA-Public Use
  Company Number: US-BIOGENIDEC-2013BI019297

PATIENT
  Age: 46 Year
  Sex: Female

DRUGS (2)
  1. AVONEX [Suspect]
     Indication: MULTIPLE SCLEROSIS
     Route: 030
     Dates: start: 201101
  2. TECFIDERA [Concomitant]
     Indication: MULTIPLE SCLEROSIS
     Route: 048
     Dates: start: 20130924

REACTIONS (2)
  - Stress [Recovered/Resolved]
  - Multiple sclerosis relapse [Unknown]
